FAERS Safety Report 14472634 (Version 3)
Quarter: 2019Q1

REPORT INFORMATION
  Report Type: Report from Study
  Country: GB (occurrence: FR)
  Receive Date: 20180201
  Receipt Date: 20190212
  Transmission Date: 20190417
  Serious: Yes (Hospitalization)
  Sender: FDA-Public Use
  Company Number: GB-ROCHE-1719052

PATIENT
  Sex: Male

DRUGS (1)
  1. ESBRIET [Suspect]
     Active Substance: PIRFENIDONE
     Indication: IDIOPATHIC PULMONARY FIBROSIS
     Route: 048
     Dates: start: 20130903

REACTIONS (18)
  - Pain [Unknown]
  - Dyspnoea [Unknown]
  - Oxygen saturation decreased [Unknown]
  - Blister [Unknown]
  - Pruritus [Unknown]
  - Malaise [Unknown]
  - Gait disturbance [Unknown]
  - Productive cough [Not Recovered/Not Resolved]
  - Poor quality sleep [Unknown]
  - Catarrh [Not Recovered/Not Resolved]
  - Fatigue [Unknown]
  - Herpes zoster [Recovering/Resolving]
  - Pneumonia [Recovered/Resolved]
  - Lower respiratory tract infection [Unknown]
  - Middle insomnia [Unknown]
  - Muscular weakness [Unknown]
  - Product dose omission [Unknown]
  - Sputum increased [Recovering/Resolving]
